FAERS Safety Report 7047923-5 (Version None)
Quarter: 2010Q4

REPORT INFORMATION
  Report Type: 
  Country: None (occurrence: None)
  Receive Date: 20101014
  Receipt Date: 20101014
  Transmission Date: 20110411
  Serious: Yes (Hospitalization)
  Sender: FDA-Public Use
  Company Number: None

PATIENT
  Sex: Female
  Weight: 63.5 kg

DRUGS (12)
  1. CYCLOPHOSPHAMIDE [Suspect]
     Dosage: 1680 MG
  2. CYTARABINE [Suspect]
     Dosage: 1008 MG
  3. DOXORUBICIN HYDROCHLORIDE [Suspect]
     Dosage: 126 MG
  4. METHOTREXATE [Suspect]
     Dosage: 30 MG
  5. VINCRISTINE SULFATE [Suspect]
     Dosage: 6 MG
  6. ATIVAN [Concomitant]
  7. BACTRIM [Concomitant]
  8. EMLA [Concomitant]
  9. FLEXERIL [Concomitant]
  10. LEXAPRO [Concomitant]
  11. MUCINEX D [Concomitant]
  12. OXYCODONE HCL [Concomitant]

REACTIONS (4)
  - HEADACHE [None]
  - LUNG DISORDER [None]
  - PYREXIA [None]
  - WHITE BLOOD CELL COUNT DECREASED [None]
